FAERS Safety Report 13299496 (Version 3)
Quarter: 2017Q3

REPORT INFORMATION
  Report Type: Spontaneous
  Country: FR (occurrence: FR)
  Receive Date: 20170306
  Receipt Date: 20170817
  Transmission Date: 20171127
  Serious: Yes (Other)
  Sender: FDA-Public Use
  Company Number: FR-ELI_LILLY_AND_COMPANY-FR201601006790

PATIENT
  Age: 58 Year
  Sex: Female
  Weight: 45 kg

DRUGS (8)
  1. SPECIAFOLDINE [Concomitant]
     Active Substance: FOLIC ACID
     Dosage: 2 DF, WEEKLY (1/W)
     Route: 065
  2. FORSTEO [Suspect]
     Active Substance: TERIPARATIDE
     Indication: SPINAL FRACTURE
     Dosage: UNK, UNKNOWN
     Route: 058
     Dates: start: 20151020
  3. AERIUS                             /01009701/ [Concomitant]
     Active Substance: EBASTINE
     Dosage: UNK, UNKNOWN
     Route: 065
  4. FLUCORTAC [Concomitant]
     Active Substance: FLUDROCORTISONE ACETATE
     Dosage: 1 DF, DAILY
     Route: 065
     Dates: start: 20170213
  5. IMETH [Concomitant]
     Active Substance: METHOTREXATE SODIUM
     Dosage: 12.5 MG, WEEKLY (1/W)
     Route: 065
  6. FORSTEO [Suspect]
     Active Substance: TERIPARATIDE
     Indication: OSTEOPOROSIS
     Dosage: UNK, UNKNOWN
     Route: 058
     Dates: end: 201707
  7. RESOLOR [Concomitant]
     Active Substance: PRUCALOPRIDE SUCCINATE
     Dosage: UNK, WEEKLY (1/W)
     Route: 065
     Dates: start: 2015
  8. IMETH [Concomitant]
     Active Substance: METHOTREXATE SODIUM
     Dosage: 0.5 MG, WEEKLY (1/W)
     Route: 065
     Dates: start: 201510

REACTIONS (14)
  - Blood parathyroid hormone increased [Unknown]
  - Lipoatrophy [Not Recovered/Not Resolved]
  - Pain [Not Recovered/Not Resolved]
  - Lipoatrophy [Unknown]
  - Renin decreased [Unknown]
  - Muscular weakness [Not Recovered/Not Resolved]
  - Weight increased [Unknown]
  - Lipoma [Not Recovered/Not Resolved]
  - Joint stiffness [Not Recovered/Not Resolved]
  - Skin disorder [Unknown]
  - Hypoaldosteronism [Unknown]
  - Blood aldosterone decreased [Unknown]
  - Nephrolithiasis [Unknown]
  - Hypotension [Unknown]

NARRATIVE: CASE EVENT DATE: 201510
